FAERS Safety Report 6889700-1 (Version None)
Quarter: 2010Q3

REPORT INFORMATION
  Report Type: 
  Country: None (occurrence: None)
  Receive Date: 20100730
  Receipt Date: 20080417
  Transmission Date: 20110219
  Serious: No
  Sender: FDA-Public Use
  Company Number: US-PFIZER INC-2008035456

PATIENT
  Sex: Male

DRUGS (12)
  1. LIPITOR [Suspect]
     Dates: end: 20080101
  2. TIKOSYN [Suspect]
     Indication: ATRIAL FIBRILLATION
  3. TIKOSYN [Suspect]
     Indication: CARDIOMYOPATHY
  4. AMBIEN [Suspect]
     Dates: end: 20080101
  5. AMBIEN [Suspect]
     Dates: end: 20080101
  6. METOPROLOL [Suspect]
  7. METOPROLOL [Suspect]
  8. PROBENECID [Suspect]
  9. PROBENECID [Suspect]
  10. FUROSEMIDE [Suspect]
  11. FUROSEMIDE [Suspect]
  12. WARFARIN SODIUM [Suspect]

REACTIONS (1)
  - RASH [None]
